FAERS Safety Report 4973067-X (Version None)
Quarter: 2006Q2

REPORT INFORMATION
  Report Type: 
  Country: None (occurrence: None)
  Receive Date: 20060410
  Receipt Date: 20060327
  Transmission Date: 20061013
  Serious: Yes (Other)
  Sender: FDA-Public Use
  Company Number: 2006042958

PATIENT
  Age: 87 Year
  Sex: Female
  Weight: 70.7611 kg

DRUGS (3)
  1. NEURONTIN [Suspect]
     Indication: RESTLESS LEGS SYNDROME
     Dates: start: 20040101, end: 20050101
  2. TOPROL-XL [Concomitant]
  3. LASIX [Concomitant]

REACTIONS (4)
  - CONDITION AGGRAVATED [None]
  - DRUG EFFECT DECREASED [None]
  - RESTLESS LEGS SYNDROME [None]
  - TRIPLE VESSEL BYPASS GRAFT [None]
